FAERS Safety Report 4398209-9 (Version None)
Quarter: 2004Q3

REPORT INFORMATION
  Report Type: 
  Country: None (occurrence: None)
  Receive Date: 20040714
  Receipt Date: 20040714
  Transmission Date: 20050211
  Serious: Yes (Hospitalization)
  Sender: FDA-Public Use
  Company Number: None

PATIENT
  Age: 80 Year
  Sex: Male
  Weight: 73.9363 kg

DRUGS (6)
  1. HEPARIN [Suspect]
     Indication: CARDIOMYOPATHY
     Dates: start: 20040523, end: 20040526
  2. DURAGESIC [Concomitant]
  3. PERCOCET [Concomitant]
  4. AMBIEN [Concomitant]
  5. DIALYVITE [Concomitant]
  6. NORVASC [Concomitant]

REACTIONS (7)
  - DIALYSIS [None]
  - DIARRHOEA [None]
  - EROSIVE DUODENITIS [None]
  - HAEMORRHAGE [None]
  - INTERNATIONAL NORMALISED RATIO INCREASED [None]
  - LETHARGY [None]
  - MELAENA [None]
